FAERS Safety Report 6640318-5 (Version None)
Quarter: 2010Q1

REPORT INFORMATION
  Report Type: 
  Country: None (occurrence: None)
  Receive Date: 20100318
  Receipt Date: 20100305
  Transmission Date: 20100710
  Serious: Yes (Hospitalization, Other)
  Sender: FDA-Public Use
  Company Number: JP-JNJFOC-20091107921

PATIENT
  Sex: Female
  Weight: 50 kg

DRUGS (22)
  1. DOXORUBICIN HCL [Suspect]
     Indication: OVARIAN CANCER RECURRENT
     Dosage: CYCLE 1
     Route: 042
     Dates: start: 20090722, end: 20100108
  2. DOXORUBICIN HCL [Suspect]
     Dosage: CYCLE 2
     Route: 042
     Dates: start: 20090722, end: 20100108
  3. DOXORUBICIN HCL [Suspect]
     Dosage: CYCLE 3
     Route: 042
     Dates: start: 20090722, end: 20100108
  4. DOXORUBICIN HCL [Suspect]
     Dosage: CYCLE 4
     Route: 042
     Dates: start: 20090722, end: 20100108
  5. OXYCONTIN [Suspect]
     Indication: DRUG USE FOR UNKNOWN INDICATION
     Route: 048
  6. MORPHINE HYDROCHLORIDE [Suspect]
     Indication: DRUG USE FOR UNKNOWN INDICATION
     Dosage: PRN
     Route: 048
  7. FENTANYL [Concomitant]
     Indication: DRUG USE FOR UNKNOWN INDICATION
     Route: 062
  8. FENTANYL [Concomitant]
     Route: 062
  9. FENTANYL [Concomitant]
     Route: 062
  10. AZULENE [Concomitant]
     Indication: PROPHYLAXIS
     Route: 049
  11. LENDORMIN [Concomitant]
     Route: 048
  12. MAGMITT [Concomitant]
     Route: 048
  13. MUCOSTA [Concomitant]
     Route: 048
  14. LAXOBERON [Concomitant]
     Route: 048
  15. HIBON [Concomitant]
     Indication: PROPHYLAXIS
     Route: 048
  16. VITAMIN B6 [Concomitant]
     Indication: PROPHYLAXIS
     Route: 048
  17. SEROTONE [Concomitant]
     Indication: PROPHYLAXIS
     Route: 042
  18. RINDERON [Concomitant]
     Indication: PROPHYLAXIS
     Route: 042
  19. FAMOSTAGINE [Concomitant]
     Indication: PROPHYLAXIS
     Route: 042
  20. LOXONIN [Concomitant]
     Route: 048
  21. GABAPEN [Concomitant]
     Route: 048
  22. OXINORM [Concomitant]
     Route: 048

REACTIONS (4)
  - DISSEMINATED INTRAVASCULAR COAGULATION [None]
  - INTESTINAL OBSTRUCTION [None]
  - LIVER DISORDER [None]
  - PULMONARY EMBOLISM [None]
